FAERS Safety Report 10873310 (Version 4)
Quarter: 2015Q1

REPORT INFORMATION
  Report Type: Report from Study
  Country: TW (occurrence: TW)
  Receive Date: 20150227
  Receipt Date: 20150326
  Transmission Date: 20150721
  Serious: Yes (Hospitalization, Other)
  Sender: FDA-Public Use
  Company Number: PHHY2012TW109620

PATIENT
  Age: 70 Year
  Sex: Female
  Weight: 55.5 kg

DRUGS (8)
  1. ACLASTA [Suspect]
     Active Substance: ZOLEDRONIC ACID
     Indication: OSTEOPOROTIC FRACTURE
     Dosage: 5 MG, UNK
     Route: 042
     Dates: start: 20120605
  2. PLENDIL [Concomitant]
     Active Substance: FELODIPINE
     Indication: HYPERTENSION
     Dosage: 1 DF, QD
     Route: 048
     Dates: start: 20010716
  3. RASITOL (FUROSEMIDE) [Concomitant]
     Active Substance: FUROSEMIDE
     Indication: OEDEMA
     Dosage: 1 DF, QD
     Route: 048
     Dates: start: 20040126
  4. CORDARONE [Concomitant]
     Active Substance: AMIODARONE HYDROCHLORIDE
     Indication: VENTRICULAR TACHYCARDIA
     Dosage: 0.5 DF, QD
     Route: 048
     Dates: start: 20030217
  5. ACLASTA [Suspect]
     Active Substance: ZOLEDRONIC ACID
     Dosage: 5 MG, UNK
     Route: 042
     Dates: start: 20130517
  6. FENTANYL. [Concomitant]
     Active Substance: FENTANYL
     Indication: PRODUCT USED FOR UNKNOWN INDICATION
     Dosage: UNK
     Route: 065
  7. CONCOR [Concomitant]
     Active Substance: BISOPROLOL FUMARATE
     Indication: HYPERTENSION
     Dosage: 5 MG, QD
     Route: 048
     Dates: start: 20010716
  8. IMDUR [Concomitant]
     Active Substance: ISOSORBIDE MONONITRATE
     Indication: ANGINA PECTORIS
     Dosage: 1 DF, QD
     Route: 065
     Dates: start: 20011126

REACTIONS (44)
  - Delirium [Unknown]
  - Cardiac failure congestive [Recovering/Resolving]
  - Electrocardiogram ST segment depression [Unknown]
  - Nausea [Recovering/Resolving]
  - Chest discomfort [Recovering/Resolving]
  - Brain natriuretic peptide increased [Unknown]
  - Erythema [Recovering/Resolving]
  - Oedema [Recovered/Resolved]
  - Injury [Recovering/Resolving]
  - Back pain [Recovering/Resolving]
  - Vertigo [Recovered/Resolved]
  - Crepitations [Unknown]
  - Lacunar infarction [Unknown]
  - Dyspnoea [Recovered/Resolved]
  - Peripheral swelling [Recovering/Resolving]
  - Fall [Recovering/Resolving]
  - Cellulitis [Recovering/Resolving]
  - Electrocardiogram abnormal [Unknown]
  - Fatigue [Recovered/Resolved]
  - Periorbital haemorrhage [Recovering/Resolving]
  - Radius fracture [Recovering/Resolving]
  - Chest pain [Not Recovered/Not Resolved]
  - Respiratory acidosis [Recovering/Resolving]
  - Altered state of consciousness [Unknown]
  - Sputum discoloured [Recovering/Resolving]
  - Cardiomegaly [Recovered/Resolved]
  - Pulmonary granuloma [Recovered/Resolved]
  - Dizziness [Recovered/Resolved]
  - Blood pressure increased [Recovered/Resolved]
  - Atrial fibrillation [Recovered/Resolved]
  - Wound [Recovering/Resolving]
  - Spinal osteoarthritis [Recovered/Resolved]
  - Fall [Recovering/Resolving]
  - Gait disturbance [Recovering/Resolving]
  - Spinal cord compression [Recovering/Resolving]
  - Electrolyte imbalance [Unknown]
  - Electrocardiogram T wave abnormal [Unknown]
  - Dyspnoea exertional [Recovered/Resolved]
  - Palpitations [Unknown]
  - Fibrin degradation products increased [Recovering/Resolving]
  - Spinal compression fracture [Recovering/Resolving]
  - Cough [Recovering/Resolving]
  - Vomiting [Recovering/Resolving]
  - Blood glucose increased [Recovered/Resolved]

NARRATIVE: CASE EVENT DATE: 20120701
